FAERS Safety Report 9688279 (Version 1)
Quarter: 2013Q4

REPORT INFORMATION
  Report Type: Spontaneous
  Country: US (occurrence: US)
  Receive Date: 20131114
  Receipt Date: 20131114
  Transmission Date: 20140711
  Serious: Yes (Other)
  Sender: FDA-Public Use
  Company Number: US-PFIZER INC-2013319871

PATIENT
  Age: 26 Year
  Sex: Male

DRUGS (1)
  1. SUMATRIPTAN SUCCINATE [Suspect]
     Indication: MIGRAINE
     Dosage: 6 MG, SINGLE
     Route: 058

REACTIONS (4)
  - Autonomic dysreflexia [Recovered/Resolved]
  - Neck pain [Recovered/Resolved]
  - Musculoskeletal stiffness [Recovered/Resolved]
  - Myalgia [Unknown]
